FAERS Safety Report 7791578-9 (Version None)
Quarter: 2011Q4

REPORT INFORMATION
  Report Type: 
  Country: None (occurrence: None)
  Receive Date: 20111003
  Receipt Date: 20110926
  Transmission Date: 20120403
  Serious: Yes (Hospitalization)
  Sender: FDA-Public Use
  Company Number: JP-SANOFI-AVENTIS-2011SA059126

PATIENT
  Age: 69 Year
  Sex: Male
  Weight: 65.4 kg

DRUGS (20)
  1. DIGOXIN [Concomitant]
     Route: 048
     Dates: start: 20080101
  2. OXETHAZINE [Concomitant]
     Route: 048
     Dates: start: 20050101
  3. KETOPROFEN [Concomitant]
     Dates: start: 20110807, end: 20110818
  4. PREDNISOLONE [Suspect]
     Indication: PROSTATE CANCER
     Dates: start: 20110802, end: 20110915
  5. CABAZITAXEL [Suspect]
     Indication: PROSTATE CANCER
     Route: 042
     Dates: start: 20110802, end: 20110802
  6. SODIUM BICARBONATE [Concomitant]
     Route: 048
     Dates: start: 20110815, end: 20110908
  7. AZOSEMIDE [Concomitant]
     Route: 048
     Dates: start: 20090401
  8. URSODIOL [Concomitant]
     Route: 048
     Dates: start: 20050101
  9. CABAZITAXEL [Suspect]
     Route: 042
     Dates: start: 20110823, end: 20110823
  10. FAMOTIDINE [Concomitant]
     Route: 048
     Dates: start: 20110210
  11. SITAGLIPTIN PHOSPHATE [Concomitant]
     Route: 048
     Dates: start: 20100101
  12. BIOFERMIN [Concomitant]
     Route: 048
     Dates: start: 20110831, end: 20110906
  13. LEVOFLOXACIN [Concomitant]
     Route: 048
     Dates: start: 20110831, end: 20110906
  14. RANITIDINE [Concomitant]
     Dates: start: 20110802, end: 20110823
  15. GLYCERIN [Concomitant]
     Dates: start: 20110815, end: 20110908
  16. MAGNESIUM OXIDE [Concomitant]
     Route: 048
     Dates: start: 20110803
  17. AMBROXOL HYDROCHLORIDE [Concomitant]
     Route: 048
     Dates: start: 20070101
  18. TIOPRONIN [Concomitant]
     Route: 048
     Dates: start: 20070101
  19. DEXAMETHASONE [Concomitant]
     Dates: start: 20110802, end: 20110823
  20. CHLORPHENIRAMINE MALEATE [Concomitant]
     Dates: start: 20110802, end: 20110823

REACTIONS (2)
  - PULMONARY EMBOLISM [None]
  - DEEP VEIN THROMBOSIS [None]
